FAERS Safety Report 4532120-5 (Version None)
Quarter: 2004Q4

REPORT INFORMATION
  Report Type: 
  Country: None (occurrence: None)
  Receive Date: 20041217
  Receipt Date: 20041209
  Transmission Date: 20050328
  Serious: Yes (Hospitalization)
  Sender: FDA-Public Use
  Company Number: K200401876

PATIENT
  Age: 94 Year
  Sex: Female

DRUGS (12)
  1. ALTACE [Suspect]
     Indication: CARDIAC FAILURE
     Dosage: 2.5 MG, QD, ORAL
     Route: 048
     Dates: start: 19980101, end: 20040921
  2. OMEPRAZOLE [Suspect]
     Indication: GASTRITIS
     Dosage: 20 MG, QD
     Dates: start: 20040901, end: 20040921
  3. LOSEC MUPS (OMEPRAZOLE MAGNESIUM) [Suspect]
     Indication: GASTRITIS
     Dates: start: 20040101, end: 20040101
  4. FURIX (FUROSEMIDE) TABLET, 40MG [Suspect]
     Dosage: 40 MG, QD, ORAL
     Route: 048
     Dates: start: 19960101, end: 20040921
  5. SELOKEN ZOC (METOPROLOL SUCCINATE) [Concomitant]
  6. NITROMEX (GLYCERYL TRINITRATE) [Concomitant]
  7. ACETAMINOPHEN [Concomitant]
  8. DUROFERON (FERROUS SULFATE) [Concomitant]
  9. K CL TAB [Concomitant]
  10. SUSCARD (GLYCERYL TRINITRATE) [Concomitant]
  11. LOPERAMIDE HYDROCHLORIDE [Concomitant]
  12. ESTRADIOL [Concomitant]

REACTIONS (6)
  - EXANTHEM [None]
  - GASTRITIS [None]
  - INFECTION [None]
  - MYOCARDIAL INFARCTION [None]
  - PYREXIA [None]
  - TOXIC EPIDERMAL NECROLYSIS [None]
